FAERS Safety Report 4845040-3 (Version None)
Quarter: 2005Q4

REPORT INFORMATION
  Report Type: 
  Country: None (occurrence: None)
  Receive Date: 20051129
  Receipt Date: 20051116
  Transmission Date: 20060501
  Serious: Yes (Other)
  Sender: FDA-Public Use
  Company Number: 2005125924

PATIENT
  Sex: Female

DRUGS (1)
  1. FLUCONAZOLE [Suspect]
     Indication: ILL-DEFINED DISORDER

REACTIONS (7)
  - ASPERGILLOSIS [None]
  - CANDIDIASIS [None]
  - CARDIAC FAILURE [None]
  - CARDIOMYOPATHY [None]
  - HEPATIC FAILURE [None]
  - LUNG DISORDER [None]
  - RENAL FAILURE [None]
